FAERS Safety Report 18137790 (Version 1)
Quarter: 2020Q3

REPORT INFORMATION
  Report Type: Spontaneous
  Country: US (occurrence: US)
  Receive Date: 20200812
  Receipt Date: 20200812
  Transmission Date: 20201103
  Serious: Yes (Other)
  Sender: FDA-Public Use
  Company Number: US-ROCHE-2045843

PATIENT
  Age: 54 Year
  Sex: Female
  Weight: 117.5 kg

DRUGS (22)
  1. CLOPIDOGREL [Concomitant]
     Active Substance: CLOPIDOGREL BISULFATE
  2. CELLCEPT [Suspect]
     Active Substance: MYCOPHENOLATE MOFETIL\MYCOPHENOLATE MOFETIL HYDROCHLORIDE
     Indication: SYSTEMIC LUPUS ERYTHEMATOSUS
     Route: 048
  3. ASPIRIN. [Concomitant]
     Active Substance: ASPIRIN
  4. CHOLECALCIFEROL [Concomitant]
     Active Substance: CHOLECALCIFEROL
  5. CYCLOSPORINE. [Concomitant]
     Active Substance: CYCLOSPORINE
  6. BACLOFEN. [Concomitant]
     Active Substance: BACLOFEN
  7. HYDROXYCHLOROQUINE [Concomitant]
     Active Substance: HYDROXYCHLOROQUINE
  8. TURMERIC ROOT EXTRACT [Concomitant]
     Active Substance: TURMERIC
  9. CELLCEPT [Suspect]
     Active Substance: MYCOPHENOLATE MOFETIL\MYCOPHENOLATE MOFETIL HYDROCHLORIDE
     Route: 048
  10. BUDESONIDE. [Concomitant]
     Active Substance: BUDESONIDE
  11. CALCIUM CITRATE [Concomitant]
     Active Substance: CALCIUM CITRATE
  12. MECLIZINE [Concomitant]
     Active Substance: MECLIZINE HYDROCHLORIDE
  13. DULOXETINE. [Concomitant]
     Active Substance: DULOXETINE
  14. AMLODIPINE [Concomitant]
     Active Substance: AMLODIPINE BESYLATE
  15. LEVOTHYROXINE. [Concomitant]
     Active Substance: LEVOTHYROXINE
  16. OMEPRAZOLE. [Concomitant]
     Active Substance: OMEPRAZOLE
  17. HYDROCORTISONE. [Concomitant]
     Active Substance: HYDROCORTISONE
  18. GABAPENTIN. [Concomitant]
     Active Substance: GABAPENTIN
  19. FORMOTEROL [Concomitant]
     Active Substance: FORMOTEROL
  20. VITAMIN D3 [Concomitant]
     Active Substance: CHOLECALCIFEROL
  21. BELIMUMAB [Concomitant]
     Active Substance: BELIMUMAB
  22. QUINAPRIL. [Concomitant]
     Active Substance: QUINAPRIL

REACTIONS (14)
  - Foot fracture [Unknown]
  - Condition aggravated [Unknown]
  - Blister [Unknown]
  - Overweight [Unknown]
  - Joint range of motion decreased [Unknown]
  - Oedema peripheral [Unknown]
  - Arthralgia [Unknown]
  - Gait disturbance [Unknown]
  - Ill-defined disorder [Unknown]
  - Musculoskeletal stiffness [Unknown]
  - Fall [Unknown]
  - Intentional product use issue [Unknown]
  - Off label use [Unknown]
  - Pain in extremity [Unknown]

NARRATIVE: CASE EVENT DATE: 201912
